FAERS Safety Report 4669584-2 (Version None)
Quarter: 2005Q2

REPORT INFORMATION
  Report Type: 
  Country: None (occurrence: None)
  Receive Date: 20050523
  Receipt Date: 20050203
  Transmission Date: 20051028
  Serious: Yes (Death, Other)
  Sender: FDA-Public Use
  Company Number: PHEH2005US01615

PATIENT
  Age: 72 Year
  Sex: Male
  Weight: 164 kg

DRUGS (2)
  1. SIMULECT [Suspect]
     Indication: RENAL TRANSPLANT
     Dosage: 20 MG, ONCE/SINGLE
     Dates: start: 20050128, end: 20050128
  2. SIMULECT [Suspect]
     Dosage: 20 MG, ONCE/SINGLE
     Dates: start: 20050202, end: 20050202

REACTIONS (8)
  - CARDIAC ARREST [None]
  - DIZZINESS [None]
  - HAEMATOCRIT DECREASED [None]
  - HAEMOGLOBIN DECREASED [None]
  - HYPOTENSION [None]
  - NAUSEA [None]
  - RED BLOOD CELL COUNT DECREASED [None]
  - UNRESPONSIVE TO PAIN STIMULI [None]
